FAERS Safety Report 5987727-5 (Version None)
Quarter: 2008Q4

REPORT INFORMATION
  Report Type: 
  Country: None (occurrence: None)
  Receive Date: 20081209
  Receipt Date: 20081201
  Transmission Date: 20090506
  Serious: Yes (Other)
  Sender: FDA-Public Use
  Company Number: DE-B.I. PHARMACEUTICALS,INC./RIDGEFIELD-2008-DE-07360DE

PATIENT
  Sex: Female

DRUGS (7)
  1. BUSCOPAN PLUS [Suspect]
     Dosage: 10ANZ
     Route: 048
  2. ACETAMINOPHEN [Suspect]
     Dosage: 1625MG
     Route: 048
  3. CETIRIZINE [Suspect]
     Dosage: 20ANZ
     Route: 048
  4. DICLOFENAC SODIUM [Suspect]
     Dosage: 1500MG
     Route: 048
  5. DICLOFENAC RESINAT [Suspect]
     Dosage: 1600MG
     Route: 048
  6. DICLOPHLOGONT [Suspect]
     Dosage: 10ANZ
     Route: 048
  7. RANITIDINE HCL [Suspect]
     Dosage: 2400MG
     Route: 048

REACTIONS (3)
  - DRUG ABUSE [None]
  - OVERDOSE [None]
  - SUICIDE ATTEMPT [None]
